FAERS Safety Report 4361345-7 (Version None)
Quarter: 2004Q2

REPORT INFORMATION
  Report Type: 
  Country: None (occurrence: None)
  Receive Date: 20040521
  Receipt Date: 20040427
  Transmission Date: 20050107
  Serious: Yes (Hospitalization)
  Sender: FDA-Public Use
  Company Number: PHNU2004DE01650

PATIENT
  Age: 47 Year
  Sex: Male

DRUGS (24)
  1. MYFORTIC [Suspect]
     Indication: RENAL TRANSPLANT
     Dosage: 740 MG, BID
     Dates: start: 20030101
  2. MYFORTIC [Suspect]
     Dosage: 360 MG, BID
     Dates: end: 20040420
  3. CYCLOSPORINE [Concomitant]
     Indication: RENAL TRANSPLANT
     Dosage: 175 MG, BID
     Dates: start: 20030101
  4. CYCLOSPORINE [Concomitant]
     Dosage: 75 MG, BID
  5. CORTISONE [Concomitant]
     Indication: RENAL TRANSPLANT
  6. URBASON [Concomitant]
     Dosage: 12 MG, QD
  7. PRAVASIN [Concomitant]
     Dosage: 20 MG, QD
  8. ROCALTROL [Concomitant]
     Dosage: 1 DF, QD
  9. VESDIL [Concomitant]
     Dosage: 5 MG, QD
  10. METOPROLOL SUCCINATE [Concomitant]
     Dosage: 1 DF, BID
  11. CYNT [Concomitant]
     Dosage: 1 DF, BID
  12. HYDROCHLOROTHIAZIDE [Concomitant]
     Dosage: 25 MG, QD
  13. HYDROCHLOROTHIAZIDE [Concomitant]
     Dosage: 12.5 MG, QD
  14. ADALAT SL - SLOW RELEASE [Concomitant]
     Dosage: 1 DF, BID
  15. L-THYROXIN ^HENNING BERLIN^ [Concomitant]
     Dosage: 150 MG, QD
  16. METHYLPREDNISOLONE [Concomitant]
     Dosage: 2 MG, Q48H
     Dates: start: 20030101
  17. METHYLPREDNISOLONE [Concomitant]
     Dosage: 8 MG, QD
     Dates: start: 20040420
  18. CIPROFLOXACIN [Concomitant]
     Dosage: 250 MG, BID
     Dates: start: 20040223
  19. METRONIDAZOLE [Concomitant]
     Dosage: 400 MG, TID
     Dates: start: 20040223
  20. METOPROLOL [Concomitant]
     Dosage: 50 MG, BID
  21. CALCITRIOL [Concomitant]
     Dosage: .25 UG, BID
  22. ENALAPRIL MALEATE [Concomitant]
     Dosage: 10 MG, QD
  23. ESOMEPRAZOLE [Concomitant]
     Dosage: 20 MG, QD
  24. MAGNESIUM [Concomitant]
     Dosage: 2/0/1/0DF/DAY

REACTIONS (29)
  - ABDOMINAL DISTENSION [None]
  - ASCITES [None]
  - BLOOD IRON DECREASED [None]
  - BLOOD THYROID STIMULATING HORMONE DECREASED [None]
  - BLOOD UREA INCREASED [None]
  - C-REACTIVE PROTEIN INCREASED [None]
  - CAMPYLOBACTER INFECTION [None]
  - COLONOSCOPY ABNORMAL [None]
  - DIARRHOEA [None]
  - DRUG LEVEL INCREASED [None]
  - ENTEROCOLITIS INFECTIOUS [None]
  - GASTRIC POLYPS [None]
  - GASTRIC ULCER [None]
  - HAEMATOCRIT DECREASED [None]
  - HAEMOGLOBIN DECREASED [None]
  - HYDROCELE [None]
  - HYPOCHROMASIA [None]
  - HYPOTENSION [None]
  - MEAN CELL HAEMOGLOBIN CONCENTRATION [None]
  - MEAN CELL HAEMOGLOBIN DECREASED [None]
  - MEAN CELL VOLUME ABNORMAL [None]
  - NEUTROPHIL COUNT INCREASED [None]
  - PERITONEAL DISORDER [None]
  - PERITONITIS BACTERIAL [None]
  - PROTEIN TOTAL DECREASED [None]
  - PROTEINURIA [None]
  - RED BLOOD CELL COUNT DECREASED [None]
  - SCROTAL SWELLING [None]
  - VOMITING [None]
